FAERS Safety Report 22387889 (Version 1)
Quarter: 2023Q2

REPORT INFORMATION
  Report Type: Spontaneous
  Country: US (occurrence: US)
  Receive Date: 20230531
  Receipt Date: 20230531
  Transmission Date: 20230722
  Serious: No
  Sender: FDA-Public Use
  Company Number: US-GSKCCFUS-Case-01711734_AE-96541

PATIENT
  Age: 77 Year
  Sex: Female

DRUGS (1)
  1. TRELEGY ELLIPTA [Suspect]
     Active Substance: FLUTICASONE FUROATE\UMECLIDINIUM BROMIDE\VILANTEROL TRIFENATATE
     Indication: Product used for unknown indication
     Dosage: 1 PUFF(S), QD (20/62.5/25 MCG)
     Route: 055
     Dates: start: 2023

REACTIONS (2)
  - Eye disorder [Not Recovered/Not Resolved]
  - Corneal oedema [Not Recovered/Not Resolved]

NARRATIVE: CASE EVENT DATE: 20230519
